FAERS Safety Report 5455976-0 (Version None)
Quarter: 2007Q3

REPORT INFORMATION
  Report Type: 
  Country: None (occurrence: None)
  Receive Date: 20070918
  Receipt Date: 20070906
  Transmission Date: 20080115
  Serious: Yes (Hospitalization)
  Sender: FDA-Public Use
  Company Number: IT-ROCHE-482615

PATIENT
  Age: 59 Year
  Sex: Male

DRUGS (3)
  1. MYCOPHENOLATE MOFETIL [Suspect]
     Route: 065
     Dates: start: 20061109
  2. FK506 [Suspect]
     Route: 048
     Dates: start: 20061109
  3. FK506 [Suspect]
     Route: 048

REACTIONS (1)
  - BILIARY ANASTOMOSIS COMPLICATION [None]
